FAERS Safety Report 8489387-0 (Version None)
Quarter: 2012Q3

REPORT INFORMATION
  Report Type: 
  Country: None (occurrence: None)
  Receive Date: 20120705
  Receipt Date: 20120628
  Transmission Date: 20120928
  Serious: Yes (Other)
  Sender: FDA-Public Use
  Company Number: FR-UCBSA-055484

PATIENT
  Age: 29 Year
  Sex: Female

DRUGS (4)
  1. NEUPRO [Suspect]
     Route: 062
     Dates: start: 20120206, end: 20120201
  2. AZILECT [Concomitant]
     Indication: PARKINSON'S DISEASE
     Route: 048
     Dates: start: 20120206
  3. NEUPRO [Suspect]
     Dosage: PROGRESSIVELY INCREASED DOSE
     Route: 062
     Dates: start: 20120201, end: 20120201
  4. NEUPRO [Suspect]
     Indication: PARKINSON'S DISEASE
     Route: 062
     Dates: start: 20120201, end: 20120413

REACTIONS (4)
  - APHONIA [None]
  - APPLICATION SITE SWELLING [None]
  - PRURITUS [None]
  - APPLICATION SITE OEDEMA [None]
